FAERS Safety Report 13529978 (Version 1)
Quarter: 2017Q2

REPORT INFORMATION
  Report Type: Spontaneous
  Country: US (occurrence: US)
  Receive Date: 20170509
  Receipt Date: 20170509
  Transmission Date: 20170830
  Serious: No
  Sender: FDA-Public Use
  Company Number: US-BRISTOL-MYERS SQUIBB COMPANY-BMS-2017-038767

PATIENT
  Sex: Female

DRUGS (1)
  1. DAKLINZA [Suspect]
     Active Substance: DACLATASVIR
     Indication: HEPATITIS VIRAL
     Dosage: 60 MG, QD
     Route: 048
     Dates: start: 20170401

REACTIONS (1)
  - Headache [Not Recovered/Not Resolved]
